FAERS Safety Report 9184004 (Version 2)
Quarter: 2013Q1

REPORT INFORMATION
  Report Type: Spontaneous
  Country: JP (occurrence: JP)
  Receive Date: 20130322
  Receipt Date: 20130327
  Transmission Date: 20140127
  Serious: Yes (Hospitalization)
  Sender: FDA-Public Use
  Company Number: JP-JNJFOC-20130310560

PATIENT
  Age: 84 Year
  Sex: Male

DRUGS (18)
  1. REMINYL [Suspect]
     Indication: INSOMNIA
     Route: 048
     Dates: start: 20130307, end: 20130312
  2. REMINYL [Suspect]
     Indication: DELIRIUM
     Route: 048
     Dates: start: 20130307, end: 20130312
  3. REMINYL [Suspect]
     Indication: RESTLESSNESS
     Route: 048
     Dates: start: 20130307, end: 20130312
  4. REMINYL [Suspect]
     Indication: DEMENTIA
     Route: 048
     Dates: start: 20130307, end: 20130312
  5. RISPERDAL [Suspect]
     Indication: INSOMNIA
     Route: 048
     Dates: start: 20130307
  6. RISPERDAL [Suspect]
     Indication: DELIRIUM
     Route: 048
     Dates: start: 20130307
  7. RISPERDAL [Suspect]
     Indication: RESTLESSNESS
     Route: 048
     Dates: start: 20130307
  8. LANIRAPID [Suspect]
     Indication: ARRHYTHMIA PROPHYLAXIS
     Route: 048
     Dates: end: 20130312
  9. WARFARIN POTASSIUM [Concomitant]
     Indication: THROMBOSIS PROPHYLAXIS
     Route: 048
  10. ANPLAG [Concomitant]
     Indication: PERIPHERAL ARTERIAL OCCLUSIVE DISEASE
     Route: 048
  11. ALDACTONE A [Concomitant]
     Route: 048
  12. BLOPRESS [Concomitant]
     Indication: DIURETIC THERAPY
     Route: 048
  13. BLOPRESS [Concomitant]
     Indication: HYPERTENSION
     Route: 048
  14. LASIX [Concomitant]
     Indication: DIURETIC THERAPY
     Route: 048
  15. LEBENIN [Concomitant]
     Indication: FLATULENCE
     Route: 048
  16. ISOSORBIDE DINITRATE [Concomitant]
     Indication: ANGINA PECTORIS
     Route: 062
  17. ZANTAC [Concomitant]
     Indication: GASTRIC DISORDER
     Route: 048
     Dates: end: 20130312
  18. DIGITALIS [Concomitant]
     Route: 048

REACTIONS (2)
  - Bradycardia [Recovered/Resolved]
  - Syncope [Recovered/Resolved]
